FAERS Safety Report 14585430 (Version 1)
Quarter: 2018Q1

REPORT INFORMATION
  Report Type: Spontaneous
  Country: US (occurrence: US)
  Receive Date: 20180301
  Receipt Date: 20180301
  Transmission Date: 20180509
  Serious: No
  Sender: FDA-Public Use
  Company Number: US-JNJFOC-20180224696

PATIENT
  Age: 65 Year
  Sex: Male
  Weight: 93.9 kg

DRUGS (1)
  1. INVOKAMET [Suspect]
     Active Substance: CANAGLIFLOZIN\METFORMIN HYDROCHLORIDE
     Indication: DIABETES MELLITUS
     Dosage: 150/500 MG
     Route: 048
     Dates: start: 201711, end: 201711

REACTIONS (2)
  - Malaise [Unknown]
  - Polyuria [Unknown]

NARRATIVE: CASE EVENT DATE: 201711
